FAERS Safety Report 8510721-7 (Version None)
Quarter: 2012Q3

REPORT INFORMATION
  Report Type: 
  Country: None (occurrence: None)
  Receive Date: 20120716
  Receipt Date: 20120711
  Transmission Date: 20120928
  Serious: Yes (Hospitalization)
  Sender: FDA-Public Use
  Company Number: US-PFIZER INC-2012167957

PATIENT
  Sex: Male

DRUGS (1)
  1. INLYTA [Suspect]
     Indication: RENAL CANCER
     Dosage: 5 MG, TAKE 1 TABLET EVERY 12 HOURS
     Route: 048
     Dates: start: 20120419

REACTIONS (2)
  - DYSPNOEA [None]
  - DEHYDRATION [None]
